FAERS Safety Report 23201960 (Version 1)
Quarter: 2023Q4

REPORT INFORMATION
  Report Type: Spontaneous
  Country: US (occurrence: None)
  Receive Date: 20231117
  Receipt Date: 20231117
  Transmission Date: 20240110
  Serious: Yes (Hospitalization)
  Sender: FDA-Public Use
  Company Number: None

PATIENT
  Age: 39 Year
  Sex: Male

DRUGS (8)
  1. ADAKVEO [Suspect]
     Active Substance: CRIZANLIZUMAB-TMCA
     Indication: Sickle cell disease
     Dosage: FREQUENCY : MONTHLY;?
     Route: 042
     Dates: start: 202308
  2. NORMAL SALINE FLUSH [Concomitant]
  3. ACETAMINOPHEN [Concomitant]
     Active Substance: ACETAMINOPHEN
  4. SODIUM CHLOR SOLN [Concomitant]
  5. DEXTROSE SOL [Concomitant]
  6. EPIPEN [Concomitant]
     Active Substance: EPINEPHRINE
  7. DEXTROSE SOLN [Concomitant]
  8. DIPHEI YDRAMINE [Concomitant]

REACTIONS (1)
  - Sickle cell anaemia with crisis [None]

NARRATIVE: CASE EVENT DATE: 20231110
